FAERS Safety Report 20222694 (Version 1)
Quarter: 2021Q4

REPORT INFORMATION
  Report Type: Spontaneous
  Country: US (occurrence: US)
  Receive Date: 20211223
  Receipt Date: 20211223
  Transmission Date: 20220303
  Serious: Yes (Hospitalization)
  Sender: FDA-Public Use
  Company Number: US-GLAXOSMITHKLINE-USCH2021091064

PATIENT
  Age: 21 Year
  Sex: Female

DRUGS (1)
  1. TUMS CHEWY DELIGHTS [Suspect]
     Active Substance: CALCIUM CARBONATE
     Indication: Dyspepsia
     Dosage: UNK

REACTIONS (1)
  - Hypersensitivity [Recovering/Resolving]

NARRATIVE: CASE EVENT DATE: 20211218
